FAERS Safety Report 21462421 (Version 1)
Quarter: 2022Q4

REPORT INFORMATION
  Report Type: Spontaneous
  Country: US (occurrence: None)
  Receive Date: 20221014
  Receipt Date: 20221014
  Transmission Date: 20230113
  Serious: Yes (Hospitalization)
  Sender: FDA-Public Use
  Company Number: None

PATIENT
  Age: 75 Year
  Sex: Male
  Weight: 89.81 kg

DRUGS (1)
  1. METOPROLOL TARTRATE [Suspect]
     Active Substance: METOPROLOL TARTRATE
     Indication: Atrial fibrillation
     Dosage: 37.5MG BID PO? ?
     Route: 048
     Dates: start: 20211004, end: 20220712

REACTIONS (4)
  - Tricuspid valve incompetence [None]
  - Mitral valve incompetence [None]
  - Atrial flutter [None]
  - Bradycardia [None]

NARRATIVE: CASE EVENT DATE: 20220711
